FAERS Safety Report 5043753-4 (Version None)
Quarter: 2006Q2

REPORT INFORMATION
  Report Type: 
  Country: None (occurrence: None)
  Receive Date: 20060628
  Receipt Date: 20060606
  Transmission Date: 20061013
  Serious: Yes (Hospitalization, Other)
  Sender: FDA-Public Use
  Company Number: USA0509109603

PATIENT
  Age: 79 Year
  Sex: Female

DRUGS (25)
  1. FORTEO [Suspect]
     Indication: OSTEOPOROSIS
     Dosage: SEE IMAGE
     Dates: start: 20050501, end: 20051001
  2. FORTEO [Suspect]
     Indication: OSTEOPOROSIS
     Dosage: SEE IMAGE
     Dates: start: 20050501
  3. FORTEO [Suspect]
     Indication: OSTEOPOROSIS
     Dosage: SEE IMAGE
     Dates: start: 20050622
  4. FORTEO [Suspect]
  5. FORTEO [Suspect]
  6. FORTEO [Concomitant]
  7. GLIPIZIDE [Concomitant]
  8. AVANDIA [Concomitant]
  9. LISINOPRIL [Concomitant]
  10. LASIX [Concomitant]
  11. LEVOXYL [Concomitant]
  12. CELEXA [Concomitant]
  13. PROTONIX [Concomitant]
  14. SYNTHROID [Concomitant]
  15. ACIDOPHILUS ^ZYMA^ (LACTOBACILLUS ACIDOPHILUS) [Concomitant]
  16. SIMETHICONE (SIMETICONE) [Concomitant]
  17. TYLENOL /USA/ (PARACETAMOL) [Concomitant]
  18. MILK OF MAGNESIA TAB [Concomitant]
  19. PHENERGAN (PROMETHAZINE HYDROCHLORIDE) [Concomitant]
  20. VICODIN [Concomitant]
  21. LEVAQUIN [Concomitant]
  22. OXYGEN [Concomitant]
  23. GUAIFENESIN [Concomitant]
  24. GLUCOSAMINE [Concomitant]
  25. OSCAL (CALCIUM CARBONATE) [Concomitant]

REACTIONS (32)
  - ABDOMINAL PAIN UPPER [None]
  - ARTHRALGIA [None]
  - ASPIRATION [None]
  - ASTHENIA [None]
  - ATELECTASIS [None]
  - BACK PAIN [None]
  - BLOOD UREA INCREASED [None]
  - CARDIOMEGALY [None]
  - CATHETER RELATED INFECTION [None]
  - CLOSTRIDIUM DIFFICILE COLITIS [None]
  - DISEASE RECURRENCE [None]
  - DYSGEUSIA [None]
  - DYSPNOEA [None]
  - ENTEROBACTER BACTERAEMIA [None]
  - FALL [None]
  - GASTRIC VOLVULUS [None]
  - HAEMOGLOBIN DECREASED [None]
  - HIATUS HERNIA [None]
  - INTERNATIONAL NORMALISED RATIO INCREASED [None]
  - OEDEMA PERIPHERAL [None]
  - OESOPHAGEAL ACHALASIA [None]
  - OESOPHAGEAL DISORDER [None]
  - OESOPHAGEAL STENOSIS [None]
  - PLEURAL EFFUSION [None]
  - PNEUMONIA [None]
  - PNEUMONIA ASPIRATION [None]
  - POOR VENOUS ACCESS [None]
  - PULMONARY EMBOLISM [None]
  - RIB FRACTURE [None]
  - SCOLIOSIS [None]
  - SPINAL COMPRESSION FRACTURE [None]
  - WEIGHT DECREASED [None]
